FAERS Safety Report 20033646 (Version 3)
Quarter: 2022Q1

REPORT INFORMATION
  Report Type: Report from Study
  Country: US (occurrence: US)
  Receive Date: 20211104
  Receipt Date: 20220203
  Transmission Date: 20220424
  Serious: Yes (Other)
  Sender: FDA-Public Use
  Company Number: US-JAZZ-2021-US-012214

PATIENT
  Sex: Female

DRUGS (8)
  1. XYREM [Suspect]
     Active Substance: SODIUM OXYBATE
     Indication: Narcolepsy
     Dosage: 2.25 GRAM, BID
     Route: 048
     Dates: start: 202106, end: 202107
  2. XYREM [Suspect]
     Active Substance: SODIUM OXYBATE
     Indication: Cataplexy
     Dosage: 3.75 GRAM, BID
     Route: 048
     Dates: start: 202107, end: 202107
  3. XYREM [Suspect]
     Active Substance: SODIUM OXYBATE
     Dosage: 2.25 GRAM, BID
     Route: 048
     Dates: start: 202107, end: 2021
  4. XYREM [Suspect]
     Active Substance: SODIUM OXYBATE
     Dosage: 3.5 GRAM, BID
     Route: 048
     Dates: start: 2021, end: 2021
  5. XYREM [Suspect]
     Active Substance: SODIUM OXYBATE
     Dosage: BETWEEN 2.25 GRAMS AND 3 GRAMS
     Route: 048
     Dates: start: 2021, end: 2021
  6. XYREM [Suspect]
     Active Substance: SODIUM OXYBATE
     Dosage: 2.75 GRAM, BID
     Route: 048
     Dates: start: 2021
  7. XYREM [Suspect]
     Active Substance: SODIUM OXYBATE
     Dosage: BETWEEN 3 TO 3.25 GRAMS BID
     Route: 048
     Dates: start: 2021, end: 2021
  8. SUNOSI [Concomitant]
     Active Substance: SOLRIAMFETOL
     Indication: Product used for unknown indication

REACTIONS (18)
  - Choking [Unknown]
  - Upper-airway cough syndrome [Unknown]
  - Sinus headache [Recovering/Resolving]
  - Migraine [Recovering/Resolving]
  - Fibromyalgia [Recovering/Resolving]
  - Productive cough [Unknown]
  - Sinusitis [Unknown]
  - Headache [Unknown]
  - Nausea [Not Recovered/Not Resolved]
  - Depression [Recovering/Resolving]
  - Sedation [Unknown]
  - Fall [Recovered/Resolved]
  - Fatigue [Unknown]
  - Vomiting [Unknown]
  - Anxiety [Not Recovered/Not Resolved]
  - Ear infection [Not Recovered/Not Resolved]
  - Product preparation issue [Unknown]
  - Wrong technique in product usage process [Unknown]

NARRATIVE: CASE EVENT DATE: 20210101
